FAERS Safety Report 12094958 (Version 1)
Quarter: 2016Q1

REPORT INFORMATION
  Report Type: Spontaneous
  Country: UA (occurrence: UA)
  Receive Date: 20160219
  Receipt Date: 20160219
  Transmission Date: 20160526
  Serious: No
  Sender: FDA-Public Use
  Company Number: UA-PERNIX THERAPEUTICS-2015PT000167

PATIENT

DRUGS (5)
  1. AEROFILLINUM [Concomitant]
  2. CEFTRIAXONE SODIUM. [Suspect]
     Active Substance: CEFTRIAXONE SODIUM
     Indication: PNEUMONIA
     Dosage: 1 G, TWICE DAILY
     Route: 030
  3. AZITHROMYCIN ANHYDROUS. [Suspect]
     Active Substance: AZITHROMYCIN ANHYDROUS
     Indication: PNEUMONIA
     Dosage: 500 MG, DAILY
     Route: 048
  4. LASOLVAN [Concomitant]
     Active Substance: AMBROXOL HYDROCHLORIDE
  5. CEDAX [Suspect]
     Active Substance: CEFTIBUTEN DIHYDRATE
     Indication: PNEUMONIA
     Dosage: 400 MG, DAILY
     Route: 048

REACTIONS (1)
  - Drug ineffective [Unknown]
